FAERS Safety Report 4742777-1 (Version None)
Quarter: 2005Q3

REPORT INFORMATION
  Report Type: 
  Country: None (occurrence: None)
  Receive Date: 20050810
  Receipt Date: 20050810
  Transmission Date: 20060218
  Serious: No
  Sender: FDA-Public Use
  Company Number: None

PATIENT
  Sex: Male
  Weight: 55.1 kg

DRUGS (1)
  1. ACIPHEX [Suspect]
     Indication: GASTRITIS
     Dosage: ACIPHEX  20 MG  ORAL
     Route: 048
     Dates: start: 20050101, end: 20050420

REACTIONS (1)
  - RENAL FAILURE ACUTE [None]
